FAERS Safety Report 7440913-X (Version None)
Quarter: 2011Q2

REPORT INFORMATION
  Report Type: 
  Country: None (occurrence: None)
  Receive Date: 20110427
  Receipt Date: 20110419
  Transmission Date: 20111010
  Serious: Yes (Hospitalization, Other)
  Sender: FDA-Public Use
  Company Number: AU-ACTELION-A-CH2011-47720

PATIENT
  Sex: Male
  Weight: 116.9 kg

DRUGS (2)
  1. TRACLEER [Suspect]
     Dosage: 62.5 MG, BID
     Route: 048
     Dates: start: 20100727
  2. TRACLEER [Suspect]
     Dosage: 125 MG, BID
     Route: 048

REACTIONS (8)
  - ASPARTATE AMINOTRANSFERASE INCREASED [None]
  - CARDIOGENIC SHOCK [None]
  - SPLENIC RUPTURE [None]
  - LAPAROTOMY [None]
  - MYOCARDIAL INFARCTION [None]
  - LIVER FUNCTION TEST ABNORMAL [None]
  - ALANINE AMINOTRANSFERASE INCREASED [None]
  - FALL [None]
